FAERS Safety Report 7374208-X (Version None)
Quarter: 2011Q1

REPORT INFORMATION
  Report Type: 
  Country: None (occurrence: None)
  Receive Date: 20110325
  Receipt Date: 20110317
  Transmission Date: 20110831
  Serious: Yes (Death, Life-Threatening, Hospitalization)
  Sender: FDA-Public Use
  Company Number: DE-CELGENEUS-062-50794-11011090

PATIENT
  Age: 77 Year
  Sex: Female
  Weight: 56.4 kg

DRUGS (8)
  1. BELOC ZOK [Concomitant]
     Dosage: 1 DOSAGE FORMS
     Route: 065
  2. PANTOPRAZOLE [Concomitant]
     Dosage: 40 MILLIGRAM
     Route: 065
  3. FILGRASTIM [Concomitant]
     Route: 065
     Dates: start: 20110110, end: 20110110
  4. NEULASTA [Concomitant]
     Dosage: 6 MILLIGRAM
     Route: 065
     Dates: start: 20101223, end: 20101223
  5. VIDAZA [Suspect]
     Indication: MYELODYSPLASTIC SYNDROME
     Dosage: 125 MILLIGRAM
     Route: 058
     Dates: start: 20101102, end: 20101110
  6. VIDAZA [Suspect]
     Dosage: 125 MILLIGRAM
     Route: 058
     Dates: start: 20101213, end: 20101221
  7. METOCLOPRAMIDE [Concomitant]
     Dosage: 60 DROPS
     Route: 065
  8. METFORMIN [Concomitant]
     Dosage: 1 GRAM
     Route: 065

REACTIONS (2)
  - ANAL INFECTION [None]
  - ACUTE LYMPHOCYTIC LEUKAEMIA [None]
